FAERS Safety Report 8571332 (Version 4)
Quarter: 2013Q1

REPORT INFORMATION
  Report Type: Spontaneous
  Country: JP (occurrence: JP)
  Receive Date: 20120521
  Receipt Date: 20130121
  Transmission Date: 20140127
  Serious: Yes (Other)
  Sender: FDA-Public Use
  Company Number: PHHY2012JP039437

PATIENT
  Sex: Male

DRUGS (3)
  1. VOLTAREN [Suspect]
     Indication: ANALGESIC THERAPY
     Route: 048
  2. SAWACILLIN [Suspect]
     Route: 048
  3. LOXOMARIN [Suspect]
     Route: 048

REACTIONS (8)
  - HIV infection [Unknown]
  - Blood HIV RNA decreased [Unknown]
  - Drug eruption [Unknown]
  - Pyrexia [Unknown]
  - Telangiectasia [Unknown]
  - Conjunctival hyperaemia [Unknown]
  - Erythema [Recovering/Resolving]
  - Pruritus generalised [Unknown]
